FAERS Safety Report 24297112 (Version 2)
Quarter: 2024Q4

REPORT INFORMATION
  Report Type: Spontaneous
  Country: DE (occurrence: DE)
  Receive Date: 20240909
  Receipt Date: 20241115
  Transmission Date: 20250115
  Serious: Yes (Hospitalization, Other)
  Sender: AUROBINDO
  Company Number: DE-BRISTOL-MYERS SQUIBB COMPANY-2024-131418

PATIENT
  Age: 75 Year
  Sex: Male

DRUGS (28)
  1. CARBOPLATIN [Suspect]
     Active Substance: CARBOPLATIN
     Indication: Non-small cell lung cancer
     Dosage: 442 MILLIGRAM ALL 3 WEEKS
     Route: 042
     Dates: start: 20231221
  2. OPDIVO [Suspect]
     Active Substance: NIVOLUMAB
     Indication: Non-small cell lung cancer
     Dosage: 360 MILLIGRAM ALL 3 WEEKS
     Route: 042
     Dates: start: 20231221
  3. YERVOY [Suspect]
     Active Substance: IPILIMUMAB
     Indication: Non-small cell lung cancer
     Dosage: 67 MILLIGRAM ALL 6 WEEKS
     Route: 042
     Dates: start: 20231221
  4. ASPIRIN [Concomitant]
     Active Substance: ASPIRIN
     Indication: Product used for unknown indication
     Dosage: UNK
     Route: 065
  5. Betnesol [Concomitant]
     Indication: Product used for unknown indication
     Dosage: UNK
     Route: 065
     Dates: start: 20240219, end: 20240301
  6. DEXAMETHASONE [Concomitant]
     Active Substance: DEXAMETHASONE
     Indication: Prophylaxis
     Dosage: UNK
     Route: 065
     Dates: start: 20231221, end: 20231221
  7. DEXAMETHASONE [Concomitant]
     Active Substance: DEXAMETHASONE
     Dosage: UNK
     Route: 065
     Dates: start: 20240104, end: 20240104
  8. DEXAMETHASONE [Concomitant]
     Active Substance: DEXAMETHASONE
     Dosage: UNK
     Route: 065
     Dates: start: 20240111, end: 20240111
  9. DEXAMETHASONE [Concomitant]
     Active Substance: DEXAMETHASONE
     Dosage: UNK
     Route: 065
     Dates: start: 20240118, end: 20240118
  10. DEXAMETHASONE [Concomitant]
     Active Substance: DEXAMETHASONE
     Dosage: UNK
     Route: 065
     Dates: start: 20240125, end: 20240125
  11. DIMETHINDENE [Concomitant]
     Active Substance: DIMETHINDENE
     Indication: Product used for unknown indication
     Dosage: UNK
     Route: 065
     Dates: start: 20240219, end: 20240301
  12. LEVOTHYROXINE [Concomitant]
     Active Substance: LEVOTHYROXINE
     Indication: Product used for unknown indication
     Dosage: UNK
     Route: 065
     Dates: start: 20240822
  13. METAMIZOL [Concomitant]
     Active Substance: METAMIZOLE SODIUM
     Indication: Product used for unknown indication
     Dosage: UNK
     Route: 065
     Dates: start: 20240809, end: 20240820
  14. METAMIZOL [Concomitant]
     Active Substance: METAMIZOLE SODIUM
     Dosage: UNK
     Route: 065
     Dates: start: 20240821
  15. METFORMIN [Concomitant]
     Active Substance: METFORMIN HYDROCHLORIDE
     Indication: Product used for unknown indication
     Dosage: UNK
     Route: 065
  16. OLMESARTAN [Concomitant]
     Active Substance: OLMESARTAN
     Indication: Product used for unknown indication
     Dosage: UNK (20/5/2,5)
     Route: 065
  17. ONDANSETRON [Concomitant]
     Active Substance: ONDANSETRON
     Indication: Prophylaxis
     Dosage: UNK
     Route: 065
     Dates: start: 20231221, end: 20231221
  18. ONDANSETRON [Concomitant]
     Active Substance: ONDANSETRON
     Dosage: UNK
     Route: 065
     Dates: start: 20240104, end: 20240104
  19. ONDANSETRON [Concomitant]
     Active Substance: ONDANSETRON
     Dosage: UNK
     Route: 065
     Dates: start: 20240111, end: 20240111
  20. ONDANSETRON [Concomitant]
     Active Substance: ONDANSETRON
     Dosage: UNK
     Route: 065
     Dates: start: 20240118, end: 20240118
  21. ONDANSETRON [Concomitant]
     Active Substance: ONDANSETRON
     Dosage: UNK
     Route: 065
     Dates: start: 20240125, end: 20240125
  22. PREDNISOLONE [Concomitant]
     Active Substance: PREDNISOLONE
     Indication: Product used for unknown indication
     Dosage: UNK
     Route: 065
     Dates: start: 20240710, end: 20240717
  23. PREDNISOLONE [Concomitant]
     Active Substance: PREDNISOLONE
     Dosage: UNK
     Route: 065
     Dates: start: 20240718, end: 20240725
  24. PREDNISOLONE [Concomitant]
     Active Substance: PREDNISOLONE
     Dosage: UNK
     Route: 065
     Dates: start: 20240726, end: 20240802
  25. PREDNISOLONE [Concomitant]
     Active Substance: PREDNISOLONE
     Dosage: UNK
     Route: 065
     Dates: start: 20240821, end: 20240827
  26. PREDNISOLONE [Concomitant]
     Active Substance: PREDNISOLONE
     Dosage: UNK
     Route: 065
     Dates: start: 20240828
  27. OLODATEROL HYDROCHLORIDE\TIOTROPIUM BROMIDE MONOHYDRATE [Concomitant]
     Active Substance: OLODATEROL HYDROCHLORIDE\TIOTROPIUM BROMIDE MONOHYDRATE
     Indication: Product used for unknown indication
     Dosage: UNK
     Route: 065
     Dates: start: 20231216
  28. ZOPICLONE [Concomitant]
     Active Substance: ZOPICLONE
     Indication: Prophylaxis
     Dosage: UNK
     Route: 065
     Dates: start: 20240118

REACTIONS (4)
  - Immune-mediated hypothyroidism [Recovering/Resolving]
  - Polyneuropathy [Recovering/Resolving]
  - Autoimmune arthritis [Recovering/Resolving]
  - General physical health deterioration [Recovered/Resolved]

NARRATIVE: CASE EVENT DATE: 20240710
